FAERS Safety Report 15027116 (Version 1)
Quarter: 2018Q2

REPORT INFORMATION
  Report Type: Spontaneous
  Country: GB (occurrence: GB)
  Receive Date: 20180619
  Receipt Date: 20180619
  Transmission Date: 20180711
  Serious: Yes (Other)
  Sender: FDA-Public Use
  Company Number: GB-TEVA-2018-GB-911307

PATIENT
  Age: 70 Year
  Sex: Female
  Weight: 69 kg

DRUGS (3)
  1. AMOXICILLIN W/CLAVULANIC ACID [Suspect]
     Active Substance: AMOXICILLIN\CLAVULANIC ACID
     Route: 065
     Dates: start: 20180503
  2. ATORVASTATIN [Concomitant]
     Active Substance: ATORVASTATIN
     Dosage: 1 DOSAGE FORMS DAILY;
     Route: 065
     Dates: start: 20170627
  3. ERYTHROMYCIN. [Concomitant]
     Active Substance: ERYTHROMYCIN
     Dosage: 8 DOSAGE FORMS DAILY;
     Route: 065
     Dates: start: 20180426, end: 20180503

REACTIONS (1)
  - Rash generalised [Recovered/Resolved]

NARRATIVE: CASE EVENT DATE: 20180505
